FAERS Safety Report 7245244-9 (Version None)
Quarter: 2011Q1

REPORT INFORMATION
  Report Type: 
  Country: None (occurrence: None)
  Receive Date: 20110118
  Receipt Date: 20110104
  Transmission Date: 20110831
  Serious: Yes (Death)
  Sender: FDA-Public Use
  Company Number: APP201100010

PATIENT
  Age: 25 Year
  Sex: Male

DRUGS (16)
  1. PYRAZINAMIDE [Concomitant]
  2. FLUCONAZOLE [Suspect]
     Indication: ORAL CANDIDIASIS
  3. HEPARIN LOW MOLECULAR WEIGHT [Concomitant]
  4. TRUVADA [Concomitant]
  5. ONDANSETRON [Suspect]
     Indication: PRODUCT USED FOR UNKNOWN INDICATION
  6. RITONAVIR [Suspect]
     Indication: HIV INFECTION
  7. EFAVIRENZ [Concomitant]
  8. PROTHIONAMIDE (PROTIONAMIDE) [Concomitant]
  9. MOXIFLOXACIN HCL [Suspect]
     Indication: TUBERCULOSIS
  10. ETHAMBUTOL (ETHAMBUTOL) [Concomitant]
  11. AMIKACIN [Concomitant]
  12. CYCLOSERINE [Concomitant]
  13. DARUNAVIR (DARUNAVIR) [Suspect]
     Indication: HIV INFECTION
  14. CLOFAZIMINE (CLOFAZIMINE) [Concomitant]
  15. LINEZOLID [Concomitant]
  16. VALGANCICLOVIR HCL [Concomitant]

REACTIONS (5)
  - SUDDEN DEATH [None]
  - ARRHYTHMIA [None]
  - HAEMOGLOBIN DECREASED [None]
  - BLOOD POTASSIUM ABNORMAL [None]
  - WHITE BLOOD CELL COUNT DECREASED [None]
